FAERS Safety Report 7442964-8 (Version None)
Quarter: 2011Q2

REPORT INFORMATION
  Report Type: 
  Country: None (occurrence: None)
  Receive Date: 20110428
  Receipt Date: 20110425
  Transmission Date: 20111010
  Serious: Yes (Death, Life-Threatening, Hospitalization, Disabling, Other)
  Sender: FDA-Public Use
  Company Number: US-MERCK-1104USA02901

PATIENT
  Age: 75 Year
  Sex: Male

DRUGS (1)
  1. ZETIA [Suspect]
     Route: 048
     Dates: start: 20100801

REACTIONS (3)
  - VENTRICULAR FIBRILLATION [None]
  - FEELING COLD [None]
  - BACK PAIN [None]
